FAERS Safety Report 13909053 (Version 1)
Quarter: 2017Q3

REPORT INFORMATION
  Report Type: Spontaneous
  Country: CM (occurrence: CM)
  Receive Date: 20170828
  Receipt Date: 20170828
  Transmission Date: 20171127
  Serious: Yes (Death, Other)
  Sender: FDA-Public Use
  Company Number: CM-009507513-1707CMR008484

PATIENT
  Age: 6 Year
  Sex: Female

DRUGS (5)
  1. AERIUS [Suspect]
     Active Substance: DESLORATADINE
     Indication: PRURITUS GENERALISED
  2. PRIMALAN [Suspect]
     Active Substance: MEQUITAZINE
     Indication: NASAL OBSTRUCTION
     Dosage: UNK
     Dates: start: 2017
  3. SULFAMETHOXAZOLE (+) TRIMETHOPRIM [Suspect]
     Active Substance: SULFAMETHOXAZOLE\TRIMETHOPRIM
     Indication: COUGH
     Dosage: UNK
  4. AERIUS [Suspect]
     Active Substance: DESLORATADINE
     Indication: NASAL OBSTRUCTION
     Dosage: ONCE A DAY
     Route: 048
     Dates: start: 201702, end: 201702
  5. PRIMALAN [Suspect]
     Active Substance: MEQUITAZINE
     Indication: PRURITUS GENERALISED

REACTIONS (3)
  - Extrapyramidal disorder [Unknown]
  - Drug ineffective [Unknown]
  - Death [Fatal]

NARRATIVE: CASE EVENT DATE: 2017
